FAERS Safety Report 24243431 (Version 1)
Quarter: 2024Q3

REPORT INFORMATION
  Report Type: Spontaneous
  Country: CH (occurrence: CH)
  Receive Date: 20240823
  Receipt Date: 20240823
  Transmission Date: 20241016
  Serious: Yes (Hospitalization)
  Sender: JOHNSON AND JOHNSON
  Company Number: CH-JNJFOC-20240848722

PATIENT
  Age: 79 Year
  Sex: Male
  Weight: 61 kg

DRUGS (14)
  1. REMICADE [Suspect]
     Active Substance: INFLIXIMAB
     Indication: Undifferentiated spondyloarthritis
     Dosage: DOSE REPORTED AS 003 MILLIGRAMS
     Route: 041
     Dates: start: 200802
  2. ARAVA [Suspect]
     Active Substance: LEFLUNOMIDE
     Indication: Undifferentiated spondyloarthritis
     Route: 048
     Dates: start: 2021
  3. YERVOY [Suspect]
     Active Substance: IPILIMUMAB
     Indication: Undifferentiated spondyloarthritis
     Route: 058
     Dates: start: 20240515, end: 20240519
  4. YERVOY [Suspect]
     Active Substance: IPILIMUMAB
     Route: 058
     Dates: start: 20240529, end: 20240529
  5. OPDIVO [Suspect]
     Active Substance: NIVOLUMAB
     Indication: Pleural mesothelioma
     Route: 058
     Dates: start: 20240515, end: 20240515
  6. OPDIVO [Suspect]
     Active Substance: NIVOLUMAB
     Route: 058
     Dates: start: 20240529, end: 20240529
  7. NOVALGIN (METAMIZOLE SODIUM) [Concomitant]
     Active Substance: METAMIZOLE SODIUM
     Route: 048
  8. TAMSULOSIN HYDROCHLORIDE [Concomitant]
     Active Substance: TAMSULOSIN HYDROCHLORIDE
     Route: 048
  9. CHOLECALCIFEROL [Concomitant]
     Active Substance: CHOLECALCIFEROL
     Route: 048
  10. ACETAMINOPHEN\CODEINE PHOSPHATE [Concomitant]
     Active Substance: ACETAMINOPHEN\CODEINE PHOSPHATE
     Dosage: 500 MG PARACETAMOL/ 30 MG CODEINE PER TABLET
     Route: 048
  11. BENSERAZIDE HYDROCHLORIDE\LEVODOPA [Concomitant]
     Active Substance: BENSERAZIDE HYDROCHLORIDE\LEVODOPA
     Indication: Parkinson^s disease
     Dosage: 100 MG LEVODOPA/ 25 MG BENSERAZIDE PER TABLET
     Route: 048
     Dates: start: 202401
  12. ELIQUIS [Concomitant]
     Active Substance: APIXABAN
     Indication: Deep vein thrombosis
     Route: 048
  13. EXFORGE [Concomitant]
     Active Substance: AMLODIPINE BESYLATE\VALSARTAN
     Indication: Hypertension
     Route: 048
  14. ATORVASTATIN VIATRIS [Concomitant]
     Route: 048

REACTIONS (2)
  - Pneumonitis [Recovering/Resolving]
  - Off label use [Unknown]

NARRATIVE: CASE EVENT DATE: 20080201
